FAERS Safety Report 17108858 (Version 1)
Quarter: 2019Q4

REPORT INFORMATION
  Report Type: Spontaneous
  Country: RU (occurrence: RU)
  Receive Date: 20191203
  Receipt Date: 20191203
  Transmission Date: 20200122
  Serious: Yes (Other)
  Sender: FDA-Public Use
  Company Number: PHHY2018RU134733

PATIENT
  Age: 64 Year
  Sex: Male

DRUGS (1)
  1. AMIODARONE [Suspect]
     Active Substance: AMIODARONE
     Indication: ARTERIOSCLEROSIS
     Dosage: 200 MG, QD
     Route: 065

REACTIONS (4)
  - Palpitations [Recovering/Resolving]
  - Product use in unapproved indication [Unknown]
  - Hyperthyroidism [Recovering/Resolving]
  - Atrial fibrillation [Recovering/Resolving]
